FAERS Safety Report 4931281-3 (Version None)
Quarter: 2006Q1

REPORT INFORMATION
  Report Type: 
  Country: None (occurrence: None)
  Receive Date: 20060302
  Receipt Date: 20050706
  Transmission Date: 20060701
  Serious: Yes (Hospitalization, Other)
  Sender: FDA-Public Use
  Company Number: US-MERCK-0507USA01073

PATIENT
  Age: 38 Year
  Sex: Male
  Weight: 68 kg

DRUGS (3)
  1. VIOXX [Suspect]
     Indication: PAIN
     Route: 048
     Dates: start: 19990101, end: 20020101
  2. BENADRYL [Concomitant]
     Route: 065
  3. TIAZAC [Concomitant]
     Route: 065

REACTIONS (4)
  - BENIGN NEOPLASM [None]
  - HYPERTENSION [None]
  - MYOCARDIAL INFARCTION [None]
  - OVERDOSE [None]
